FAERS Safety Report 13359861 (Version 6)
Quarter: 2017Q2

REPORT INFORMATION
  Report Type: Spontaneous
  Country: IT (occurrence: IT)
  Receive Date: 20170322
  Receipt Date: 20170501
  Transmission Date: 20170830
  Serious: Yes (Hospitalization)
  Sender: FDA-Public Use
  Company Number: IT-BAXTER-2017BAX012210

PATIENT
  Age: 62 Year
  Sex: Male
  Weight: 61 kg

DRUGS (15)
  1. FIXIONEAL [Suspect]
     Active Substance: CALCIUM\DEXTROSE\MAGNESIUM\SODIUM BICARBONATE\SODIUM CHLORIDE\SODIUM LACTATE
     Dosage: 2 BAG OF 5 LITER
     Route: 033
     Dates: start: 20170314
  2. FIXIONEAL [Suspect]
     Active Substance: CALCIUM\DEXTROSE\MAGNESIUM\SODIUM BICARBONATE\SODIUM CHLORIDE\SODIUM LACTATE
     Dosage: 1 BAG OF 5 LITER
     Route: 033
  3. FIXIONEAL [Suspect]
     Active Substance: CALCIUM\DEXTROSE\MAGNESIUM\SODIUM BICARBONATE\SODIUM CHLORIDE\SODIUM LACTATE
     Dosage: 1 BAG OF 5 LITER
     Route: 033
  4. FIXIONEAL [Suspect]
     Active Substance: CALCIUM\DEXTROSE\MAGNESIUM\SODIUM BICARBONATE\SODIUM CHLORIDE\SODIUM LACTATE
     Indication: PERITONEAL DIALYSIS
     Route: 033
  5. FUROSEMIDE. [Suspect]
     Active Substance: FUROSEMIDE
     Indication: FLUID OVERLOAD
     Route: 065
  6. FIXIONEAL [Suspect]
     Active Substance: CALCIUM\DEXTROSE\MAGNESIUM\SODIUM BICARBONATE\SODIUM CHLORIDE\SODIUM LACTATE
     Indication: PERITONEAL DIALYSIS
     Dosage: 1 BAG OF 5 LITER
     Route: 033
     Dates: start: 20161217
  7. FIXIONEAL [Suspect]
     Active Substance: CALCIUM\DEXTROSE\MAGNESIUM\SODIUM BICARBONATE\SODIUM CHLORIDE\SODIUM LACTATE
     Dosage: 1 BAG OF 5 LITER
     Route: 033
     Dates: start: 20170127
  8. FIXIONEAL [Suspect]
     Active Substance: CALCIUM\DEXTROSE\MAGNESIUM\SODIUM BICARBONATE\SODIUM CHLORIDE\SODIUM LACTATE
     Dosage: 2 BAG OF 5 LITER
     Route: 033
  9. FIXIONEAL [Suspect]
     Active Substance: CALCIUM\DEXTROSE\MAGNESIUM\SODIUM BICARBONATE\SODIUM CHLORIDE\SODIUM LACTATE
     Indication: PERITONEAL DIALYSIS
     Dosage: 1 BAG OF 5 LITER
     Route: 033
     Dates: start: 20161217
  10. FIXIONEAL [Suspect]
     Active Substance: CALCIUM\DEXTROSE\MAGNESIUM\SODIUM BICARBONATE\SODIUM CHLORIDE\SODIUM LACTATE
     Dosage: 1 BAG OF 5 LITER
     Route: 033
     Dates: start: 20170127
  11. FUROSEMIDE. [Suspect]
     Active Substance: FUROSEMIDE
     Route: 065
     Dates: start: 20170316
  12. AMIODARONE [Concomitant]
     Active Substance: AMIODARONE
     Indication: VENTRICULAR TACHYCARDIA
     Route: 065
  13. FUROSEMIDE. [Suspect]
     Active Substance: FUROSEMIDE
     Indication: ANURIA
     Route: 065
  14. EXTRANEAL [Suspect]
     Active Substance: CALCIUM CHLORIDE\ICODEXTRIN\MAGNESIUM CHLORIDE\SODIUM CHLORIDE\SODIUM LACTATE
     Indication: PERITONEAL DIALYSIS
     Route: 033
     Dates: start: 20170303, end: 20170313
  15. FUROSEMIDE. [Suspect]
     Active Substance: FUROSEMIDE
     Route: 065

REACTIONS (3)
  - Weight decreased [Unknown]
  - Anuria [Unknown]
  - Fluid overload [Unknown]

NARRATIVE: CASE EVENT DATE: 201703
